FAERS Safety Report 22006880 (Version 2)
Quarter: 2023Q1

REPORT INFORMATION
  Report Type: Spontaneous
  Country: US (occurrence: US)
  Receive Date: 20230217
  Receipt Date: 20230328
  Transmission Date: 20230418
  Serious: Yes (Other)
  Sender: FDA-Public Use
  Company Number: US-BAUSCH-BL-2023-002441

PATIENT
  Sex: Male

DRUGS (4)
  1. DIAZEPAM [Suspect]
     Active Substance: DIAZEPAM
     Indication: Seizure
     Route: 065
  2. DIAZEPAM [Suspect]
     Active Substance: DIAZEPAM
  3. DIASTAT [Suspect]
     Active Substance: DIAZEPAM
     Indication: Seizure
     Route: 065
  4. DIASTAT [Suspect]
     Active Substance: DIAZEPAM

REACTIONS (2)
  - Drug ineffective [Unknown]
  - Product use issue [Unknown]
